FAERS Safety Report 8719770 (Version 2)
Quarter: 2012Q4

REPORT INFORMATION
  Report Type: 
  Country: JP (occurrence: JP)
  Receive Date: 20120813
  Receipt Date: 20120920
  Transmission Date: 20130627
  Serious: Yes (Other)
  Sender: FDA-Public Use
  Company Number: PHHY2012JP069008

PATIENT
  Age: 82 Year
  Sex: Male

DRUGS (6)
  1. DIOVAN [Suspect]
     Indication: HYPERTENSION
     Dosage: 40 mg, daily
     Route: 048
     Dates: start: 20120411, end: 20120620
  2. DIOVAN [Suspect]
     Dosage: 20 mg,  daily
     Route: 048
     Dates: start: 20120425
  3. DIOVAN [Suspect]
     Dosage: 40 mg, daily
     Route: 048
     Dates: start: 20120620, end: 20120718
  4. NORVASC [Concomitant]
     Dosage: 5 mg, UNK
     Route: 048
  5. PARIET [Concomitant]
     Dosage: 10 mg, UNK
     Route: 048
  6. MICARDIS [Concomitant]
     Dosage: 20 mg, once in the morning and once in the evening

REACTIONS (6)
  - Drug-induced liver injury [Recovered/Resolved]
  - Aspartate aminotransferase increased [Recovered/Resolved]
  - Renal disorder [Recovered/Resolved]
  - Muscle disorder [Unknown]
  - Blood creatine phosphokinase increased [Recovered/Resolved]
  - Blood pressure fluctuation [Unknown]
